FAERS Safety Report 7347162-4 (Version None)
Quarter: 2011Q1

REPORT INFORMATION
  Report Type: 
  Country: None (occurrence: None)
  Receive Date: 20110311
  Receipt Date: 20110307
  Transmission Date: 20110831
  Serious: Yes (Other)
  Sender: FDA-Public Use
  Company Number: GB-PFIZER INC-2011026746

PATIENT
  Age: 57 Year
  Sex: Male

DRUGS (1)
  1. EPANUTIN [Suspect]
     Dosage: 100 MG, 2X/DAY
     Dates: start: 19710101

REACTIONS (7)
  - PYREXIA [None]
  - MALAISE [None]
  - WHEEZING [None]
  - TREMOR [None]
  - PRURITUS [None]
  - BREATHING-RELATED SLEEP DISORDER [None]
  - FATIGUE [None]
